FAERS Safety Report 7423567-8 (Version None)
Quarter: 2011Q2

REPORT INFORMATION
  Report Type: 
  Country: None (occurrence: None)
  Receive Date: 20110419
  Receipt Date: 20110415
  Transmission Date: 20111010
  Serious: Yes (Life-Threatening, Other)
  Sender: FDA-Public Use
  Company Number: US-ASTRAZENECA-2011SE21766

PATIENT
  Sex: Male
  Weight: 127 kg

DRUGS (4)
  1. LEXAPRO [Concomitant]
     Indication: ANTIDEPRESSANT THERAPY
  2. AMBIEN [Concomitant]
     Indication: SLEEP DISORDER
  3. RISPERDAL [Concomitant]
     Indication: ANTIDEPRESSANT THERAPY
  4. SEROQUEL [Suspect]
     Indication: DEPRESSION
     Dosage: 50 MG, 100 MG, AND 200 MG.
     Route: 048
     Dates: start: 20070406, end: 20070401

REACTIONS (7)
  - VISION BLURRED [None]
  - DEHYDRATION [None]
  - ANXIETY [None]
  - FEAR OF DEATH [None]
  - TREMOR [None]
  - APALLIC SYNDROME [None]
  - SUICIDAL BEHAVIOUR [None]
